FAERS Safety Report 13864937 (Version 2)
Quarter: 2017Q3

REPORT INFORMATION
  Report Type: Spontaneous
  Country: US (occurrence: US)
  Receive Date: 20170814
  Receipt Date: 20170823
  Transmission Date: 20171127
  Serious: Yes (Other)
  Sender: FDA-Public Use
  Company Number: US-PFIZER INC-2017345166

PATIENT
  Sex: Female

DRUGS (3)
  1. METHYLPREDNISOLONE ACETATE. [Suspect]
     Active Substance: METHYLPREDNISOLONE ACETATE
     Dosage: 40 MG, SINGLE
  2. ENBREL [Suspect]
     Active Substance: ETANERCEPT
  3. GABAPENTIN. [Suspect]
     Active Substance: GABAPENTIN
     Dosage: 300 MG, 1X/DAY AT BEDTIME

REACTIONS (7)
  - Synovitis [Unknown]
  - Joint range of motion decreased [Unknown]
  - Liver function test abnormal [Unknown]
  - Hypoaesthesia [Unknown]
  - Joint effusion [Unknown]
  - Deep vein thrombosis [Unknown]
  - Paraesthesia [Unknown]
